FAERS Safety Report 9167742 (Version 2)
Quarter: 2013Q2

REPORT INFORMATION
  Report Type: Spontaneous
  Country: US (occurrence: US)
  Receive Date: 20130318
  Receipt Date: 20130418
  Transmission Date: 20140414
  Serious: Yes (Death)
  Sender: FDA-Public Use
  Company Number: US-PFIZER INC-2013084835

PATIENT
  Sex: 0

DRUGS (1)
  1. XALKORI [Suspect]
     Dosage: UNK

REACTIONS (2)
  - Disease progression [Fatal]
  - Neoplasm malignant [Fatal]
